FAERS Safety Report 14917967 (Version 2)
Quarter: 2019Q2

REPORT INFORMATION
  Report Type: Spontaneous
  Country: US (occurrence: US)
  Receive Date: 20180521
  Receipt Date: 20190521
  Transmission Date: 20190711
  Serious: Yes (Life-Threatening, Hospitalization, Other)
  Sender: FDA-Public Use
  Company Number: US-AUROBINDO-AUR-APL-2018-026101

PATIENT

DRUGS (1)
  1. LOPERAMIDE TABLET [Suspect]
     Active Substance: LOPERAMIDE
     Indication: DIARRHOEA
     Dosage: 6 TO 8 TABLETS OF LOPERAMIDE A DAY
     Route: 065

REACTIONS (5)
  - Overdose [Unknown]
  - Electrocardiogram QT prolonged [Recovering/Resolving]
  - Atrioventricular block first degree [Recovered/Resolved]
  - Electrocardiogram abnormal [Recovered/Resolved]
  - Bundle branch block right [Recovering/Resolving]
